FAERS Safety Report 15244115 (Version 2)
Quarter: 2018Q3

REPORT INFORMATION
  Report Type: Spontaneous
  Country: ES (occurrence: ES)
  Receive Date: 20180806
  Receipt Date: 20180808
  Transmission Date: 20181010
  Serious: Yes (Hospitalization, Other)
  Sender: FDA-Public Use
  Company Number: ES-SA-2018SA166841

PATIENT
  Age: 50 Year
  Sex: Female

DRUGS (4)
  1. CLOPIDOGREL BISULFATE. [Suspect]
     Active Substance: CLOPIDOGREL BISULFATE
     Indication: ANTIPLATELET THERAPY
     Dosage: 2 MG/KG, QD
  2. ACETYLSALICYLIC ACID [Interacting]
     Active Substance: ASPIRIN
     Indication: ANTIPLATELET THERAPY
     Dosage: 2 MG/KG, QD
  3. ENOXAPARIN SODIUM. [Interacting]
     Active Substance: ENOXAPARIN SODIUM
     Indication: ANTICOAGULANT THERAPY
     Dosage: DOSAGE FORM: UNSPECIFIED
     Route: 058
  4. ABCIXIMAB [Suspect]
     Active Substance: ABCIXIMAB
     Indication: CATHETER PLACEMENT
     Route: 040

REACTIONS (7)
  - Anaemia [Recovering/Resolving]
  - Melaena [Unknown]
  - Petechiae [Recovered/Resolved]
  - Hypotension [Unknown]
  - Immune thrombocytopenic purpura [Recovered/Resolved]
  - Labelled drug-drug interaction medication error [Unknown]
  - Ecchymosis [Recovered/Resolved]
